FAERS Safety Report 6537740-4 (Version None)
Quarter: 2010Q1

REPORT INFORMATION
  Report Type: 
  Country: None (occurrence: None)
  Receive Date: 20100111
  Receipt Date: 20100101
  Transmission Date: 20100710
  Serious: Yes (Other)
  Sender: FDA-Public Use
  Company Number: 1000011190

PATIENT
  Age: 37 Year
  Sex: Female
  Weight: 70 kg

DRUGS (2)
  1. ESCITALOPRAM OXALATE [Suspect]
     Dosage: (50 MG, ONCE), ORAL
     Route: 048
     Dates: start: 20100101, end: 20100101
  2. MIRTAZAPINE [Suspect]
     Dosage: (600 MG, ONCE), ORAL
     Route: 048
     Dates: start: 20100101, end: 20100101

REACTIONS (3)
  - DEPRESSED LEVEL OF CONSCIOUSNESS [None]
  - INTENTIONAL OVERDOSE [None]
  - SUICIDE ATTEMPT [None]
